FAERS Safety Report 18415887 (Version 1)
Quarter: 2020Q4

REPORT INFORMATION
  Report Type: Spontaneous
  Country: SE (occurrence: SE)
  Receive Date: 20201022
  Receipt Date: 20201022
  Transmission Date: 20210114
  Serious: Yes (Other)
  Sender: FDA-Public Use
  Company Number: SE-TEVA-2020-SE-1839873

PATIENT
  Age: 53 Year
  Sex: Male

DRUGS (8)
  1. CANODERM 5 % KRAM [Concomitant]
  2. DICLOFENAC [Concomitant]
     Active Substance: DICLOFENAC
     Dosage: DICLOFENAC T
  3. RAMIPRIL. [Suspect]
     Active Substance: RAMIPRIL
     Indication: HYPERTENSION
     Route: 065
  4. SPIRIVA 18 MIKROGRAM INHALATIONSPULVER, HARD KAPSEL [Concomitant]
  5. ZYLORIC 100 MG TABLETT [Concomitant]
  6. SELOKENZOC 50 MG DEPOTTABLETT [Concomitant]
  7. PANODIL 500 MG FILMDRAGERAD TABLETT [Concomitant]
     Active Substance: ACETAMINOPHEN
  8. FURIX RETARD 60 MG DEPOTKAPSEL, HARD [Concomitant]

REACTIONS (4)
  - Pruritus [Recovering/Resolving]
  - Angioedema [Recovering/Resolving]
  - Swelling face [Recovering/Resolving]
  - Lip swelling [Recovering/Resolving]

NARRATIVE: CASE EVENT DATE: 20130512
